FAERS Safety Report 14487547 (Version 1)
Quarter: 2018Q1

REPORT INFORMATION
  Report Type: Spontaneous
  Country: CA (occurrence: CA)
  Receive Date: 20180205
  Receipt Date: 20180205
  Transmission Date: 20180509
  Serious: Yes (Other)
  Sender: FDA-Public Use
  Company Number: CA-CELLTRION INC.-2017CA002081

PATIENT

DRUGS (9)
  1. INFLECTRA [Suspect]
     Active Substance: INFLIXIMAB-DYYB
     Dosage: 400 MG, EVERY 0,2,6 WEEKS, THEN EVERY 4 WEEKS
     Route: 042
  2. INFLECTRA [Suspect]
     Active Substance: INFLIXIMAB-DYYB
     Dosage: 355 MG, CYCLIC (EVERY 0, 2, 6 WEEKS, THEN EVERY 4 WEEKS
     Route: 042
     Dates: start: 20171030
  3. ADVAIR UNSPEC [Concomitant]
     Dosage: 500 UG, UNK
  4. RISEDRONATE [Concomitant]
     Active Substance: RISEDRONATE SODIUM
     Dosage: 35 MG, WEEKLY
  5. INFLECTRA [Suspect]
     Active Substance: INFLIXIMAB-DYYB
     Indication: ANKYLOSING SPONDYLITIS
     Dosage: 355 MG, CYCLIC (EVERY 2, 6 WEEKS, THEN EVERY 4 WEEKS FOR 6MONTHS)
     Route: 042
     Dates: start: 20170131, end: 20170215
  6. SPIRIVA [Concomitant]
     Active Substance: TIOTROPIUM BROMIDE MONOHYDRATE
     Dosage: 18 UG,UNK
  7. INFLECTRA [Suspect]
     Active Substance: INFLIXIMAB-DYYB
     Dosage: 355 MG, CYCLIC (EVERY 0, 2, 6 WEEKS, THEN EVERY 4 WEEKS
     Route: 042
  8. PREGABALIN. [Concomitant]
     Active Substance: PREGABALIN
     Dosage: 375 MG, DAILY
  9. VIMOVO [Concomitant]
     Active Substance: ESOMEPRAZOLE MAGNESIUM\NAPROXEN
     Dosage: UNK

REACTIONS (9)
  - Limb injury [Unknown]
  - Lower respiratory tract infection [Unknown]
  - Malaise [Not Recovered/Not Resolved]
  - Respiratory tract infection [Not Recovered/Not Resolved]
  - Erythema [Unknown]
  - Productive cough [Unknown]
  - Lung infection [Not Recovered/Not Resolved]
  - Product use issue [Unknown]
  - Induration [Unknown]

NARRATIVE: CASE EVENT DATE: 20170220
